FAERS Safety Report 21366415 (Version 1)
Quarter: 2022Q3

REPORT INFORMATION
  Report Type: Spontaneous
  Country: US (occurrence: US)
  Receive Date: 20220922
  Receipt Date: 20220922
  Transmission Date: 20221027
  Serious: Yes (Other)
  Sender: FDA-Public Use
  Company Number: US-BRISTOL-MYERS SQUIBB COMPANY-2022-067908

PATIENT
  Age: 72 Year
  Sex: Male

DRUGS (16)
  1. REVLIMID [Suspect]
     Active Substance: LENALIDOMIDE
     Indication: Plasma cell myeloma
     Dosage: 3 WEEKS ON AND 1 WEEK OFF
     Route: 065
  2. REVLIMID [Suspect]
     Active Substance: LENALIDOMIDE
     Dosage: 3 WEEKS ON AND 1 WEEK OFF
     Route: 065
  3. REVLIMID [Suspect]
     Active Substance: LENALIDOMIDE
     Dosage: 3 WEEKS ON AND 1 WEEK OFF
     Route: 048
     Dates: start: 20220824
  4. DEXAMETHASONE [Suspect]
     Active Substance: DEXAMETHASONE
     Indication: Plasma cell myeloma
     Dosage: THREE WEEKS ON AND ONE WEEK OFF
     Route: 065
  5. METFORMIN [Concomitant]
     Active Substance: METFORMIN HYDROCHLORIDE
  6. ATENOLOL [Concomitant]
     Active Substance: ATENOLOL
  7. GLYBURIDE [Concomitant]
     Active Substance: GLYBURIDE
  8. LOVASTATIN [Concomitant]
     Active Substance: LOVASTATIN
  9. ALLOPURINOL [Concomitant]
     Active Substance: ALLOPURINOL
  10. OMEPRAZOLE [Concomitant]
     Active Substance: OMEPRAZOLE
  11. SPIRONOLACTONE [Concomitant]
     Active Substance: SPIRONOLACTONE
  12. FLUTICASONE [Concomitant]
     Active Substance: FLUTICASONE
  13. CAMPHOR\HERBALS [Concomitant]
     Active Substance: CAMPHOR\HERBALS
  14. HYDROCHLOROTHIAZIDE [Concomitant]
     Active Substance: HYDROCHLOROTHIAZIDE
  15. LYRICA [Concomitant]
     Active Substance: PREGABALIN
  16. ASPIRIN [Concomitant]
     Active Substance: ASPIRIN

REACTIONS (6)
  - Abdominal discomfort [Unknown]
  - Liver function test increased [Unknown]
  - Gallbladder enlargement [Unknown]
  - Biliary dyskinesia [Unknown]
  - Gastrointestinal haemorrhage [Unknown]
  - Renal cell carcinoma [Unknown]

NARRATIVE: CASE EVENT DATE: 20160101
